FAERS Safety Report 9728036 (Version 1)
Quarter: 2013Q4

REPORT INFORMATION
  Report Type: Spontaneous
  Country: US (occurrence: None)
  Receive Date: 20131203
  Receipt Date: 20131203
  Transmission Date: 20140711
  Serious: No
  Sender: FDA-Public Use
  Company Number: None

PATIENT
  Age: 26 Year
  Sex: Female
  Weight: 56.25 kg

DRUGS (1)
  1. CIPRO 250 MG BAYER [Suspect]
     Indication: PYELONEPHRITIS
     Dosage: 1 PILL 2 TIMES A DAY FOR 7 DAY, TWICE DAILY, TAKEN BY MOUTH
     Route: 048
     Dates: start: 20010202, end: 20010208

REACTIONS (10)
  - Dizziness [None]
  - Tinnitus [None]
  - Disturbance in attention [None]
  - Paraesthesia [None]
  - Pain [None]
  - Arthralgia [None]
  - Arthralgia [None]
  - Pain in extremity [None]
  - Pain in extremity [None]
  - Clostridium difficile infection [None]
